FAERS Safety Report 23897869 (Version 1)
Quarter: 2024Q2

REPORT INFORMATION
  Report Type: Spontaneous
  Country: US (occurrence: US)
  Receive Date: 20240524
  Receipt Date: 20240524
  Transmission Date: 20240716
  Serious: No
  Sender: FDA-Public Use
  Company Number: US-Calliditas-2024CAL00774

PATIENT
  Age: 29 Year
  Sex: Male
  Weight: 50.3 kg

DRUGS (1)
  1. TARPEYO [Suspect]
     Active Substance: BUDESONIDE
     Indication: IgA nephropathy
     Dates: start: 20240419

REACTIONS (4)
  - Product residue present [Not Recovered/Not Resolved]
  - Inappropriate schedule of product administration [Unknown]
  - Nocturia [Unknown]
  - Urine abnormality [Unknown]
